FAERS Safety Report 4842769-8 (Version None)
Quarter: 2005Q4

REPORT INFORMATION
  Report Type: 
  Country: None (occurrence: None)
  Receive Date: 20051128
  Receipt Date: 20051111
  Transmission Date: 20060501
  Serious: Yes (Death)
  Sender: FDA-Public Use
  Company Number: CLOF-10159

PATIENT
  Age: 81 Year
  Sex: Male

DRUGS (8)
  1. CLOFARABINE [Suspect]
     Indication: ACUTE MYELOID LEUKAEMIA
     Dosage: 57 MG QD X 5 IV
     Route: 042
     Dates: start: 20050829, end: 20050902
  2. VASOPRESSIN [Concomitant]
  3. DEXMEDETOMIDINE [Concomitant]
  4. CALCIUM CHLORIDE [Concomitant]
  5. HYDROMORPHONE [Concomitant]
  6. MEROPENEM [Concomitant]
  7. CASPOFUNGIN [Concomitant]
  8. MIDAZOLAM [Concomitant]

REACTIONS (4)
  - ATRIAL FIBRILLATION [None]
  - MULTI-ORGAN FAILURE [None]
  - NEUTROPENIA [None]
  - PNEUMONIA [None]
